FAERS Safety Report 9508356 (Version 1)
Quarter: 2013Q3

REPORT INFORMATION
  Report Type: Spontaneous
  Country: US (occurrence: US)
  Receive Date: 20130909
  Receipt Date: 20130909
  Transmission Date: 20140515
  Serious: No
  Sender: FDA-Public Use
  Company Number: US-PFIZER INC-2013258652

PATIENT
  Age: 69 Year
  Sex: Female
  Weight: 49.89 kg

DRUGS (3)
  1. ATORVASTATIN CALCIUM [Suspect]
     Indication: BLOOD CHOLESTEROL INCREASED
     Dosage: UNK, DAILY
     Dates: end: 201308
  2. CHOLESTACARE [Suspect]
     Indication: BLOOD CHOLESTEROL INCREASED
     Dosage: UNK
  3. OMEGA 3 [Concomitant]
     Dosage: UNK

REACTIONS (1)
  - Drug ineffective [Unknown]
